FAERS Safety Report 6291325-6 (Version None)
Quarter: 2009Q3

REPORT INFORMATION
  Report Type: 
  Country: None (occurrence: None)
  Receive Date: 20090730
  Receipt Date: 20090721
  Transmission Date: 20100115
  Serious: Yes (Other)
  Sender: FDA-Public Use
  Company Number: US-JNJCH-2009016508

PATIENT
  Age: 59 Year
  Sex: Male
  Weight: 122.5 kg

DRUGS (6)
  1. ROGAINE [Suspect]
     Indication: ALOPECIA
     Dosage: TEXT:ONE-HALF CAP ONCE AT NIGHT
     Route: 061
  2. PROPECIA [Suspect]
     Indication: DRUG USE FOR UNKNOWN INDICATION
     Dosage: TEXT:UNSPECIFIED
     Route: 065
  3. WARFARIN SODIUM [Concomitant]
     Indication: ANTICOAGULANT THERAPY
     Dosage: TEXT:UNSPECIFIED
     Route: 065
  4. LANOXIN [Concomitant]
     Indication: HEART RATE IRREGULAR
     Dosage: TEXT:UNSPECIFIED ONCE DAILY
     Route: 065
  5. ACIPHEX [Concomitant]
     Indication: ANTACID THERAPY
     Dosage: TEXT:UNSPECIFIED ONCE DAILY
     Route: 065
  6. DIPHENHYDRAMINE HCL [Concomitant]
     Indication: ANTIALLERGIC THERAPY
     Dosage: TEXT:UNSPECIFIED ONCE NIGHTLY
     Route: 065

REACTIONS (2)
  - DANDRUFF [None]
  - PSORIASIS [None]
